FAERS Safety Report 18637588 (Version 1)
Quarter: 2020Q4

REPORT INFORMATION
  Report Type: Spontaneous
  Country: US (occurrence: US)
  Receive Date: 20201218
  Receipt Date: 20201218
  Transmission Date: 20210114
  Serious: No
  Sender: FDA-Public Use
  Company Number: US-TEVA-2020-US-1859398

PATIENT
  Sex: Female

DRUGS (1)
  1. EPINEPHRINE TEVA [Suspect]
     Active Substance: EPINEPHRINE
     Route: 065

REACTIONS (2)
  - Dysphonia [Not Recovered/Not Resolved]
  - Adverse reaction [Unknown]
